FAERS Safety Report 7488671-7 (Version None)
Quarter: 2011Q2

REPORT INFORMATION
  Report Type: 
  Country: None (occurrence: None)
  Receive Date: 20110518
  Receipt Date: 20110512
  Transmission Date: 20111010
  Serious: Yes (Other)
  Sender: FDA-Public Use
  Company Number: B0713422A

PATIENT
  Sex: Male

DRUGS (4)
  1. ADVAIR DISKUS 100/50 [Suspect]
     Indication: ASTHMA
     Route: 065
  2. CRESTOR [Concomitant]
     Dosage: .5TAB PER DAY
  3. RAMIPRIL [Concomitant]
     Dosage: 1CAP PER DAY
  4. NUELIN SR [Concomitant]
     Dosage: 1TAB TWICE PER DAY

REACTIONS (2)
  - PRODUCT QUALITY ISSUE [None]
  - ASTHMA [None]
